FAERS Safety Report 9663742 (Version 2)
Quarter: 2013Q4

REPORT INFORMATION
  Report Type: Report from Study
  Country: US (occurrence: US)
  Receive Date: 20131101
  Receipt Date: 20131101
  Transmission Date: 20140711
  Serious: Yes (Other)
  Sender: FDA-Public Use
  Company Number: PHEH2013US019983

PATIENT
  Sex: Male

DRUGS (2)
  1. SANDOSTATIN LAR [Suspect]
     Dosage: 20 MG, UNK
     Route: 030
     Dates: start: 20111223
  2. AFINITOR [Suspect]
     Dosage: UNK UKN, UNK

REACTIONS (3)
  - Disease progression [Unknown]
  - Flushing [Unknown]
  - Diarrhoea [Unknown]
